FAERS Safety Report 14538102 (Version 1)
Quarter: 2018Q1

REPORT INFORMATION
  Report Type: Report from Study
  Country: US (occurrence: US)
  Receive Date: 20180216
  Receipt Date: 20180216
  Transmission Date: 20180509
  Serious: Yes (Hospitalization, Other)
  Sender: FDA-Public Use
  Company Number: US-ROCHE-1830103

PATIENT
  Age: 56 Year
  Sex: Female
  Weight: 80.5 kg

DRUGS (4)
  1. IPRATROPIUM BROMIDE. [Suspect]
     Active Substance: IPRATROPIUM BROMIDE
     Indication: ENDOMETRIAL CANCER
     Dosage: EVERY 12 HOURS AS NEEDED
     Route: 045
  2. BEVACIZUMAB. [Suspect]
     Active Substance: BEVACIZUMAB
     Indication: ENDOMETRIAL CANCER
     Dosage: OVER 30-90 MIN ONCE IN 2 WEEKS 28 DAYS (CYCLE 1)?LAST DOSE ON 08/AUG/2016
     Route: 042
     Dates: start: 20141217
  3. DASATINIB. [Suspect]
     Active Substance: DASATINIB
     Indication: ENDOMETRIAL CANCER
     Dosage: LAST DOSE ON 15/AUG/2016?CYCLE= 28 DAYS (CYCLE 2+)
     Route: 048
     Dates: start: 20150112
  4. LOSARTAN. [Suspect]
     Active Substance: LOSARTAN
     Indication: ENDOMETRIAL CANCER
     Route: 065

REACTIONS (6)
  - Lymphocyte count decreased [Unknown]
  - Bone pain [Recovering/Resolving]
  - Hypophosphataemia [Unknown]
  - Pleural effusion [Unknown]
  - Bacteraemia [Unknown]
  - Pyrexia [Recovering/Resolving]

NARRATIVE: CASE EVENT DATE: 20160816
